FAERS Safety Report 9883626 (Version 1)
Quarter: 2014Q1

REPORT INFORMATION
  Report Type: Spontaneous
  Country: US (occurrence: US)
  Receive Date: 20140210
  Receipt Date: 20140210
  Transmission Date: 20141002
  Serious: Yes (Hospitalization)
  Sender: FDA-Public Use
  Company Number: US-ROCHE-1341771

PATIENT
  Sex: Male

DRUGS (9)
  1. NAPROXEN [Suspect]
     Indication: PRODUCT USED FOR UNKNOWN INDICATION
     Dosage: 1-2 PILLS A DAY
     Route: 048
  2. CLONAZEPAM [Suspect]
     Indication: SEDATION
     Route: 065
  3. BACTRIM [Suspect]
     Indication: PRODUCT USED FOR UNKNOWN INDICATION
     Route: 042
  4. MYCOPHENOLATE MOFETIL [Concomitant]
     Indication: SYSTEMIC LUPUS ERYTHEMATOSUS
     Route: 048
     Dates: start: 1998
  5. PLAQUENIL [Concomitant]
     Indication: SYSTEMIC LUPUS ERYTHEMATOSUS
     Dosage: 200MG TWICE A DAY
     Route: 065
  6. PREDNISONE [Concomitant]
     Route: 048
  7. ZIAC (UNITED STATES) [Concomitant]
     Indication: HYPERTENSION
     Route: 065
  8. COZAAR [Concomitant]
     Route: 048
  9. HYDROCODONE BITARTRATE [Concomitant]
     Route: 065

REACTIONS (12)
  - Nephrolithiasis [Unknown]
  - Rash [Not Recovered/Not Resolved]
  - Malaise [Not Recovered/Not Resolved]
  - Nephritis [Not Recovered/Not Resolved]
  - Pain [Not Recovered/Not Resolved]
  - Blood pressure abnormal [Recovered/Resolved]
  - Insomnia [Not Recovered/Not Resolved]
  - Diverticulitis [Unknown]
  - Abscess intestinal [Unknown]
  - Systemic lupus erythematosus [Unknown]
  - Abdominal pain upper [Unknown]
  - Drug hypersensitivity [Unknown]
